FAERS Safety Report 8020130-5 (Version None)
Quarter: 2012Q1

REPORT INFORMATION
  Report Type: 
  Country: None (occurrence: None)
  Receive Date: 20120103
  Receipt Date: 20111227
  Transmission Date: 20120608
  Serious: No
  Sender: FDA-Public Use
  Company Number: US-BAYER-2011-124516

PATIENT
  Sex: Male

DRUGS (2)
  1. STAXYN [Suspect]
     Indication: ERECTILE DYSFUNCTION
     Dosage: 10 MG, UNK
  2. VERAPAMIL [Concomitant]

REACTIONS (1)
  - ERECTILE DYSFUNCTION [None]
